FAERS Safety Report 25085406 (Version 1)
Quarter: 2025Q1

REPORT INFORMATION
  Report Type: Spontaneous
  Country: CA (occurrence: CA)
  Receive Date: 20250317
  Receipt Date: 20250317
  Transmission Date: 20250409
  Serious: Yes (Disabling, Other)
  Sender: SANOFI AVENTIS
  Company Number: CA-SA-2025SA072847

PATIENT
  Age: 43 Year
  Sex: Male

DRUGS (1)
  1. REZUROCK [Suspect]
     Active Substance: BELUMOSUDIL

REACTIONS (1)
  - Cataract [Not Recovered/Not Resolved]

NARRATIVE: CASE EVENT DATE: 20250201
